FAERS Safety Report 23040476 (Version 1)
Quarter: 2023Q4

REPORT INFORMATION
  Report Type: Spontaneous
  Country: US (occurrence: None)
  Receive Date: 20231006
  Receipt Date: 20231006
  Transmission Date: 20240110
  Serious: Yes (Life-Threatening, Hospitalization, Disabling, Other)
  Sender: FDA-Public Use
  Company Number: None

PATIENT
  Age: 6 Year
  Sex: Male
  Weight: 25.2 kg

DRUGS (3)
  1. GUANFACINE [Suspect]
     Active Substance: GUANFACINE
     Indication: Attention deficit hyperactivity disorder
     Dosage: FREQUENCY : TWICE A DAY;?
     Route: 048
     Dates: start: 202103, end: 20230912
  2. GUANFACINE [Concomitant]
     Active Substance: GUANFACINE
  3. MELATONIN [Concomitant]
     Active Substance: MELATONIN

REACTIONS (4)
  - Gastrointestinal haemorrhage [None]
  - Duodenal ulcer [None]
  - Constipation [None]
  - Blood loss anaemia [None]

NARRATIVE: CASE EVENT DATE: 20230917
